FAERS Safety Report 23157438 (Version 1)
Quarter: 2023Q4

REPORT INFORMATION
  Report Type: Other
  Country: US (occurrence: None)
  Receive Date: 20231108
  Receipt Date: 20231108
  Transmission Date: 20240110
  Serious: Yes (Death)
  Sender: FDA-Public Use
  Company Number: US-ROCHE-3433384

PATIENT
  Age: 64 Year
  Sex: Female

DRUGS (6)
  1. OCREVUS [Suspect]
     Active Substance: OCRELIZUMAB
     Indication: Primary progressive multiple sclerosis
     Dosage: THEN 600 MG IV EVERY 6 MONTHS. PATIENT LAST INFUSION WAS ON 15/JUN/2023. DATE OF TREATMENT: 31/MAY/2
     Route: 065
     Dates: start: 20220531
  2. ASPIRIN [Concomitant]
     Active Substance: ASPIRIN
  3. PRISTIQ EXTENDED-RELEASE [Concomitant]
     Active Substance: DESVENLAFAXINE SUCCINATE
  4. GLUCOPHAGE [Concomitant]
     Active Substance: METFORMIN HYDROCHLORIDE
  5. BENICAR [Concomitant]
     Active Substance: OLMESARTAN MEDOXOMIL
  6. CRESTOR [Concomitant]
     Active Substance: ROSUVASTATIN CALCIUM

REACTIONS (1)
  - Basal ganglia haemorrhage [Fatal]

NARRATIVE: CASE EVENT DATE: 20231001
